FAERS Safety Report 5373648-8 (Version None)
Quarter: 2007Q2

REPORT INFORMATION
  Report Type: 
  Country: None (occurrence: None)
  Receive Date: 20070628
  Receipt Date: 20070620
  Transmission Date: 20071010
  Serious: Yes (Hospitalization)
  Sender: FDA-Public Use
  Company Number: US-ROCHE-503217

PATIENT
  Age: 53 Year
  Sex: Female
  Weight: 61 kg

DRUGS (12)
  1. PEG-INTERFERON ALFA 2A (RO 25-8310) [Suspect]
     Indication: HEPATITIS C
     Route: 058
     Dates: start: 20060721
  2. RIBAVIRIN [Suspect]
     Indication: HEPATITIS C
     Route: 048
     Dates: start: 20060721, end: 20061228
  3. RIBAVIRIN [Suspect]
     Route: 048
     Dates: start: 20061228, end: 20070111
  4. RIBAVIRIN [Suspect]
     Route: 048
     Dates: start: 20070115
  5. PLACEBO [Suspect]
     Indication: HEPATITIS C
     Route: 048
     Dates: start: 20060721, end: 20061016
  6. IBUPROFEN [Concomitant]
     Indication: ARTHRALGIA
     Route: 048
     Dates: start: 20050101
  7. FILGRASTIM [Concomitant]
     Indication: NEUTROPENIA
     Route: 058
     Dates: start: 20061120
  8. PRILOSEC [Concomitant]
     Indication: GASTRITIS
     Route: 048
     Dates: start: 20061128
  9. ZYRTEC [Concomitant]
     Indication: DERMATITIS
     Route: 048
     Dates: start: 20061207
  10. TRIAMCINOLONE [Concomitant]
     Indication: DERMATITIS
     Route: 061
     Dates: start: 20061207
  11. ACETAMINOPHEN [Concomitant]
     Indication: ARTHRALGIA
     Dosage: TAKEN AS NEEDED.
     Route: 048
     Dates: start: 20050101
  12. ACIPHEX [Concomitant]
     Indication: NAUSEA
     Dosage: ALSO TAKEN FOR GASTRITIS
     Route: 048
     Dates: start: 20060101, end: 20061127

REACTIONS (5)
  - AXILLARY MASS [None]
  - AXILLARY PAIN [None]
  - INFLAMMATION [None]
  - LYMPHADENITIS [None]
  - PANCYTOPENIA [None]
